FAERS Safety Report 7498693-8 (Version None)
Quarter: 2011Q2

REPORT INFORMATION
  Report Type: 
  Country: None (occurrence: None)
  Receive Date: 20110516
  Receipt Date: 20110430
  Transmission Date: 20111010
  Serious: Yes (Other)
  Sender: FDA-Public Use
  Company Number: AUR-APL-2011-01568

PATIENT
  Age: 69 Year
  Sex: Male
  Weight: 90.7 kg

DRUGS (3)
  1. PLAVIX [Concomitant]
  2. FINASTERIDE [Suspect]
     Indication: POLLAKIURIA
     Dosage: 5MG - DAILY -ORAL
     Dates: start: 20100101
  3. PRAVACHOL [Concomitant]

REACTIONS (6)
  - DYSPNOEA [None]
  - BACK PAIN [None]
  - PRODUCT QUALITY ISSUE [None]
  - CHEST DISCOMFORT [None]
  - MUSCULOSKELETAL PAIN [None]
  - PAIN IN EXTREMITY [None]
